FAERS Safety Report 12001104 (Version 4)
Quarter: 2016Q2

REPORT INFORMATION
  Report Type: Other
  Country: US (occurrence: US)
  Receive Date: 20160204
  Receipt Date: 20160502
  Transmission Date: 20160815
  Serious: Yes (Death, Hospitalization, Other)
  Sender: FDA-Public Use
  Company Number: US-ACORDA-ACO_120967_2016

PATIENT
  Sex: Female
  Weight: 61.22 kg

DRUGS (6)
  1. DOXYCYCLINE. [Concomitant]
     Active Substance: DOXYCYCLINE
     Indication: OSTEOMYELITIS
     Dosage: UNK
     Route: 065
  2. BACLOFEN. [Suspect]
     Active Substance: BACLOFEN
     Indication: MULTIPLE SCLEROSIS
     Dosage: 10 MG, HS
     Route: 065
  3. SIMVASTATIN. [Concomitant]
     Active Substance: SIMVASTATIN
     Indication: MULTIPLE SCLEROSIS
     Dosage: 10 MG, EVERY DAY
  4. AMPYRA [Suspect]
     Active Substance: DALFAMPRIDINE
     Indication: MULTIPLE SCLEROSIS
     Dosage: 10 MG, BID
     Route: 065
  5. CIPROFLOXACIN. [Concomitant]
     Active Substance: CIPROFLOXACIN
     Indication: OSTEOMYELITIS
     Dosage: UNK
     Route: 065
  6. BETASERON [Concomitant]
     Active Substance: INTERFERON BETA-1B
     Indication: MULTIPLE SCLEROSIS
     Dosage: .3 MG, QOD
     Route: 058

REACTIONS (6)
  - Respiratory failure [Fatal]
  - Seizure [Recovered/Resolved]
  - Pneumonia [None]
  - Multiple sclerosis relapse [Unknown]
  - Sepsis [Fatal]
  - Sepsis [Fatal]

NARRATIVE: CASE EVENT DATE: 201512
